FAERS Safety Report 15814623 (Version 2)
Quarter: 2023Q2

REPORT INFORMATION
  Report Type: Spontaneous
  Country: US (occurrence: US)
  Receive Date: 20190111
  Receipt Date: 20230413
  Transmission Date: 20230721
  Serious: Yes (Disabling, Other)
  Sender: FDA-Public Use
  Company Number: US-REGENERON PHARMACEUTICALS, INC.-2019-10664

PATIENT
  Sex: Female

DRUGS (5)
  1. EYLEA [Suspect]
     Active Substance: AFLIBERCEPT
     Indication: Neovascular age-related macular degeneration
     Dosage: UNK, INTO LEFT EYE; FREQUENCY: WHENEVER EYES WENT BAD;  FORMULATION: VIAL
     Dates: start: 201811, end: 201811
  2. EYLEA [Suspect]
     Active Substance: AFLIBERCEPT
     Dosage: UNK, INTO LEFT EYE; FREQUENCY: WHENEVER EYES WENT BAD;  FORMULATION: VIAL
     Dates: start: 20181219, end: 20181219
  3. EYLEA [Suspect]
     Active Substance: AFLIBERCEPT
     Dosage: UNK, INTO LEFT EYE; FREQUENCY: WHENEVER EYES WENT BAD;  FORMULATION: VIAL
     Dates: start: 20190604, end: 20190604
  4. LASIX [Concomitant]
     Active Substance: FUROSEMIDE
     Indication: Fluid retention
     Dosage: 20 MG, ONCE A MONTH
     Dates: start: 2018
  5. LASIX [Concomitant]
     Active Substance: FUROSEMIDE
     Indication: Blood pressure increased
     Dosage: 40 MG, DAILY
     Dates: start: 201901

REACTIONS (12)
  - Blindness [Not Recovered/Not Resolved]
  - Paralysis [Recovered/Resolved]
  - Cerebrovascular accident [Recovered/Resolved]
  - Dysphonia [Unknown]
  - Malaise [Recovering/Resolving]
  - Confusional state [Unknown]
  - Influenza like illness [Recovering/Resolving]
  - Blood pressure increased [Not Recovered/Not Resolved]
  - Fear of injection [Unknown]
  - Pain [Unknown]
  - Discomfort [Recovered/Resolved]
  - Loss of personal independence in daily activities [Not Recovered/Not Resolved]

NARRATIVE: CASE EVENT DATE: 20181101
